FAERS Safety Report 11071874 (Version 1)
Quarter: 2015Q2

REPORT INFORMATION
  Report Type: Spontaneous
  Country: US (occurrence: None)
  Receive Date: 20150427
  Receipt Date: 20150427
  Transmission Date: 20150821
  Serious: Yes (Life-Threatening, Disabling)
  Sender: FDA-Public Use
  Company Number: None

PATIENT
  Age: 25 Year
  Sex: Female
  Weight: 61.24 kg

DRUGS (6)
  1. LEVOFLOXACIN. [Suspect]
     Active Substance: LEVOFLOXACIN
     Indication: PNEUMONIA
     Route: 048
     Dates: start: 20141104, end: 20141106
  2. LEVOFLOXACIN. [Suspect]
     Active Substance: LEVOFLOXACIN
     Indication: INFECTION
     Route: 048
     Dates: start: 20141104, end: 20141106
  3. PHILIPS PROBIOTIC CAPS [Concomitant]
  4. ZYRTEC [Concomitant]
     Active Substance: CETIRIZINE HYDROCHLORIDE
  5. WOMENS MULTIVITAMIN [Concomitant]
  6. VENTOLIN HFA [Concomitant]
     Active Substance: ALBUTEROL SULFATE

REACTIONS (12)
  - Nausea [None]
  - Tremor [None]
  - Hallucinations, mixed [None]
  - Irritability [None]
  - Dizziness [None]
  - Hyperhidrosis [None]
  - Loss of consciousness [None]
  - Tendonitis [None]
  - Syncope [None]
  - Flushing [None]
  - Piloerection [None]
  - Paraesthesia [None]

NARRATIVE: CASE EVENT DATE: 20141106
